FAERS Safety Report 6549931-7 (Version None)
Quarter: 2010Q1

REPORT INFORMATION
  Report Type: 
  Country: None (occurrence: None)
  Receive Date: 20100125
  Receipt Date: 20100114
  Transmission Date: 20100710
  Serious: Yes (Hospitalization)
  Sender: FDA-Public Use
  Company Number: BR-BAYER-201010374LA

PATIENT
  Age: 56 Year
  Sex: Female
  Weight: 73 kg

DRUGS (4)
  1. NEXAVAR [Suspect]
     Indication: RENAL CANCER
     Dosage: TOTAL DAILY DOSE: 800 MG  UNIT DOSE: 200 MG
     Route: 048
     Dates: start: 20100104, end: 20100108
  2. CAPTOPRIL [Concomitant]
     Indication: BLOOD PRESSURE INCREASED
     Dosage: TOTAL DAILY DOSE: 25 MG  UNIT DOSE: 25 MG
     Route: 048
     Dates: start: 20080101, end: 20100111
  3. SELOZOK [Concomitant]
     Indication: CARDIAC DISORDER
     Dosage: TOTAL DAILY DOSE: 50 MG  UNIT DOSE: 50 MG
     Route: 048
     Dates: start: 20090101
  4. POLARAMINE [Concomitant]
     Route: 048
     Dates: start: 20100113

REACTIONS (16)
  - BLOOD PRESSURE INCREASED [None]
  - CHEST PAIN [None]
  - DRY SKIN [None]
  - DYSPNOEA [None]
  - EYE DISCHARGE [None]
  - FEELING HOT [None]
  - GENERALISED ERYTHEMA [None]
  - INSOMNIA [None]
  - MALAISE [None]
  - ONYCHOCLASIS [None]
  - ONYCHOLYSIS [None]
  - PAIN OF SKIN [None]
  - RASH PAPULAR [None]
  - SKIN EXFOLIATION [None]
  - SKIN HYPERTROPHY [None]
  - SWELLING [None]
